FAERS Safety Report 18237497 (Version 3)
Quarter: 2020Q4

REPORT INFORMATION
  Report Type: Spontaneous
  Country: BR (occurrence: BR)
  Receive Date: 20200907
  Receipt Date: 20201009
  Transmission Date: 20210113
  Serious: No
  Sender: FDA-Public Use
  Company Number: BR-PFIZER INC-2020344414

PATIENT
  Sex: Female

DRUGS (5)
  1. MAGNESIUM [Concomitant]
     Active Substance: MAGNESIUM
     Dosage: 250 G
  2. AVAMYS [Concomitant]
     Active Substance: FLUTICASONE FUROATE
  3. NEUTROFER FOLICO [Concomitant]
  4. LYRICA [Suspect]
     Active Substance: PREGABALIN
     Indication: COVID-19
  5. LYRICA [Suspect]
     Active Substance: PREGABALIN
     Indication: ALLERGIC RESPIRATORY SYMPTOM
     Dosage: UNK
     Dates: start: 202009

REACTIONS (7)
  - Off label use [Unknown]
  - Product colour issue [Unknown]
  - Product use in unapproved indication [Unknown]
  - Poor quality product administered [Unknown]
  - Drug effect less than expected [Unknown]
  - Product prescribing error [Unknown]
  - Product storage error [Unknown]
